FAERS Safety Report 5264648-7 (Version None)
Quarter: 2007Q1

REPORT INFORMATION
  Report Type: 
  Country: None (occurrence: None)
  Receive Date: 20070314
  Receipt Date: 20070302
  Transmission Date: 20070707
  Serious: Yes (Disabling, Other)
  Sender: FDA-Public Use
  Company Number: PHNR2007AU00601

PATIENT
  Sex: Female

DRUGS (3)
  1. ZOMETA [Suspect]
     Indication: OSTEOPOROSIS
     Dosage: UNK, UNK
     Dates: end: 20050201
  2. PREMARIN [Concomitant]
     Dosage: 0.3 MG PER DAY
     Dates: start: 19960101
  3. AVANZA [Concomitant]
     Dosage: 15MG DAILY
     Dates: start: 20031229

REACTIONS (3)
  - DRY EYE [None]
  - EYE SWELLING [None]
  - PAIN [None]
